FAERS Safety Report 7598485-5 (Version None)
Quarter: 2011Q3

REPORT INFORMATION
  Report Type: 
  Country: None (occurrence: None)
  Receive Date: 20110708
  Receipt Date: 20110629
  Transmission Date: 20111222
  Serious: Yes (Hospitalization)
  Sender: FDA-Public Use
  Company Number: JP-MERCK-1106USA02760

PATIENT
  Age: 8 Year
  Sex: Female

DRUGS (11)
  1. FOSAMAX [Suspect]
     Indication: OSTEOPOROSIS PROPHYLAXIS
     Route: 048
     Dates: start: 20110512, end: 20110609
  2. ACTEMRA [Suspect]
     Route: 041
     Dates: start: 20110610, end: 20110610
  3. ACYCLOVIR [Suspect]
     Route: 048
     Dates: start: 20110529, end: 20110610
  4. LIMETHASON [Suspect]
     Indication: JUVENILE ARTHRITIS
     Dosage: 7 TIMES
     Route: 041
     Dates: start: 20110426, end: 20110526
  5. PREDNISOLONE [Concomitant]
     Indication: JUVENILE ARTHRITIS
     Route: 048
     Dates: start: 20110520
  6. PEPCID [Suspect]
     Indication: PROPHYLAXIS AGAINST GASTROINTESTINAL ULCER
     Route: 048
     Dates: start: 20110419, end: 20110610
  7. ACTEMRA [Suspect]
     Indication: JUVENILE ARTHRITIS
     Route: 041
     Dates: start: 20110512, end: 20110512
  8. ACTEMRA [Suspect]
     Route: 041
     Dates: start: 20110530, end: 20110530
  9. PREDNISOLONE [Concomitant]
     Indication: JUVENILE ARTHRITIS
     Route: 048
     Dates: start: 20110527
  10. ACTEMRA [Suspect]
     Route: 041
     Dates: start: 20110519, end: 20110519
  11. ACYCLOVIR [Suspect]
     Indication: ANTIVIRAL PROPHYLAXIS
     Route: 048
     Dates: start: 20110428, end: 20110511

REACTIONS (2)
  - LIVER DISORDER [None]
  - OVERDOSE [None]
